FAERS Safety Report 9432853 (Version 6)
Quarter: 2014Q3

REPORT INFORMATION
  Report Type: Spontaneous
  Country: US (occurrence: US)
  Receive Date: 20130731
  Receipt Date: 20140918
  Transmission Date: 20150326
  Serious: Yes (Disabling)
  Sender: FDA-Public Use
  Company Number: US-009507513-1307USA015068

PATIENT
  Sex: Male
  Weight: 90.7 kg

DRUGS (1)
  1. PROPECIA [Suspect]
     Active Substance: FINASTERIDE
     Indication: ALOPECIA
     Dosage: 1 MG, QD
     Route: 048
     Dates: start: 200303, end: 20070529

REACTIONS (12)
  - Intervertebral disc protrusion [Not Recovered/Not Resolved]
  - Erectile dysfunction [Not Recovered/Not Resolved]
  - Blood testosterone decreased [Unknown]
  - Hyperlipidaemia [Unknown]
  - Anxiety [Not Recovered/Not Resolved]
  - Alopecia [Unknown]
  - Amnesia [Not Recovered/Not Resolved]
  - Sciatica [Not Recovered/Not Resolved]
  - Hypogonadism [Unknown]
  - Loss of libido [Not Recovered/Not Resolved]
  - Glucose tolerance impaired [Unknown]
  - Panic attack [Unknown]

NARRATIVE: CASE EVENT DATE: 200402
